FAERS Safety Report 7217614-6 (Version None)
Quarter: 2011Q1

REPORT INFORMATION
  Report Type: 
  Country: None (occurrence: None)
  Receive Date: 20110110
  Receipt Date: 20101217
  Transmission Date: 20110831
  Serious: Yes (Death, Other)
  Sender: FDA-Public Use
  Company Number: IT-ROCHE-744908

PATIENT

DRUGS (3)
  1. PEGINTERFERON ALFA-2A [Suspect]
     Route: 058
  2. RIBAVARIN [Suspect]
     Dosage: MEAN DAILY DOSE: 13.4 MG/KG (PLUS OR MINUS 1.0 MG/KG)
     Route: 048
  3. PEGINTERFERON ALFA-2B [Suspect]
     Route: 058

REACTIONS (13)
  - HEPATIC NEOPLASM MALIGNANT [None]
  - HEPATIC ENCEPHALOPATHY [None]
  - NAUSEA [None]
  - LUNG NEOPLASM MALIGNANT [None]
  - VOMITING [None]
  - ANAEMIA [None]
  - BLADDER CANCER [None]
  - ARTHRALGIA [None]
  - INFLUENZA LIKE ILLNESS [None]
  - OESOPHAGEAL VARICES HAEMORRHAGE [None]
  - ASTHENIA [None]
  - COLON CANCER [None]
  - ANGINA PECTORIS [None]
